FAERS Safety Report 5023760-8 (Version None)
Quarter: 2006Q2

REPORT INFORMATION
  Report Type: 
  Country: None (occurrence: None)
  Receive Date: 20060612
  Receipt Date: 20060601
  Transmission Date: 20061013
  Serious: Yes (Hospitalization, Other)
  Sender: FDA-Public Use
  Company Number: US-JNJFOC-20060305298

PATIENT
  Sex: Female
  Weight: 66.23 kg

DRUGS (18)
  1. REMICADE [Suspect]
     Route: 042
  2. REMICADE [Suspect]
     Indication: RHEUMATOID ARTHRITIS
     Route: 042
  3. METHOTREXATE SODIUM [Concomitant]
     Indication: RHEUMATOID ARTHRITIS
  4. PREDNISONE [Concomitant]
  5. PREDNISONE [Concomitant]
  6. PREDNISONE [Concomitant]
     Indication: RHEUMATOID ARTHRITIS
  7. DOXAZOSIN [Concomitant]
  8. PLENDIL [Concomitant]
  9. LISINOPRIL [Concomitant]
  10. METOPROLOL [Concomitant]
  11. PROTONIX [Concomitant]
  12. PROTONIX [Concomitant]
  13. ARIMIDEX [Concomitant]
     Indication: BREAST CANCER
  14. FOLIC ACID [Concomitant]
  15. COUMADIN [Concomitant]
     Indication: THROMBOSIS
  16. AMBIEN [Concomitant]
  17. ADVAIR DISKUS 100/50 [Concomitant]
     Route: 055
  18. ADVAIR DISKUS 100/50 [Concomitant]
     Route: 055

REACTIONS (8)
  - ANAEMIA [None]
  - ATRIAL FIBRILLATION [None]
  - CARDIAC FAILURE CONGESTIVE [None]
  - INAPPROPRIATE ANTIDIURETIC HORMONE SECRETION [None]
  - NEUTROPENIA [None]
  - ORAL CANDIDIASIS [None]
  - RHEUMATOID LUNG [None]
  - SINUSITIS [None]
